FAERS Safety Report 18771260 (Version 1)
Quarter: 2021Q1

REPORT INFORMATION
  Report Type: Spontaneous
  Country: US (occurrence: US)
  Receive Date: 20210122
  Receipt Date: 20210122
  Transmission Date: 20210419
  Serious: No
  Sender: FDA-Public Use
  Company Number: NVSC2020US348777

PATIENT
  Sex: Male

DRUGS (1)
  1. PATADAY [Suspect]
     Active Substance: OLOPATADINE HYDROCHLORIDE
     Indication: EYE PRURITUS
     Dosage: UNK
     Route: 065

REACTIONS (4)
  - Product colour issue [Unknown]
  - Treatment failure [Unknown]
  - Product physical issue [Unknown]
  - Eye irritation [Unknown]
